FAERS Safety Report 10027989 (Version 1)
Quarter: 2014Q1

REPORT INFORMATION
  Report Type: Spontaneous
  Country: US (occurrence: None)
  Receive Date: 20140228
  Receipt Date: 20140228
  Transmission Date: 20141002
  Serious: Yes (Hospitalization)
  Sender: FDA-Public Use
  Company Number: 2013-US-001668

PATIENT
  Age: 72 Year
  Sex: Male

DRUGS (1)
  1. XYREM [Suspect]
     Indication: INSOMNIA
     Route: 048
     Dates: start: 200603, end: 200607

REACTIONS (6)
  - Investigation [None]
  - Rotator cuff syndrome [None]
  - Laceration [None]
  - Fall [None]
  - Confusional state [None]
  - Off label use [None]
